FAERS Safety Report 8007043-X (Version None)
Quarter: 2011Q4

REPORT INFORMATION
  Report Type: 
  Country: None (occurrence: None)
  Receive Date: 20111123
  Receipt Date: 20110808
  Transmission Date: 20120403
  Serious: No
  Sender: FDA-Public Use
  Company Number: 331858

PATIENT
  Age: 51 Year
  Sex: Male

DRUGS (2)
  1. VICTOZA [Suspect]
     Indication: DIABETES MELLITUS
     Dosage: 1.8 MG,QD, SUBCUTANEOUS
     Route: 058
  2. NOVOLOG MIX 70/30 FLEX PEN (INSULIN ASPART) SUSPENSION [Suspect]
     Indication: DIABETES MELLITUS
     Dosage: 3 U, BID, SUBCUTANEOUS

REACTIONS (2)
  - HOT FLUSH [None]
  - HYPERHIDROSIS [None]
